FAERS Safety Report 9413064 (Version 3)
Quarter: 2013Q4

REPORT INFORMATION
  Report Type: Report from Study
  Country: JP (occurrence: JP)
  Receive Date: 20130722
  Receipt Date: 20131203
  Transmission Date: 20140711
  Serious: Yes (Other)
  Sender: FDA-Public Use
  Company Number: JP-GLAXOSMITHKLINE-B0909334A

PATIENT
  Age: 70 Year
  Sex: Male

DRUGS (6)
  1. REQUIP [Suspect]
     Indication: PARKINSON^S DISEASE
     Dosage: 8MG PER DAY
     Route: 048
     Dates: start: 20121201, end: 20130710
  2. LIVALO [Suspect]
     Route: 048
  3. NORVASC [Suspect]
     Route: 048
  4. CIBENOL [Suspect]
     Route: 048
  5. REQUIP [Concomitant]
     Indication: PARKINSON^S DISEASE
     Route: 048
  6. MADOPAR [Concomitant]
     Indication: PARKINSON^S DISEASE
     Route: 048
     Dates: start: 20110926

REACTIONS (1)
  - Sudden onset of sleep [Recovering/Resolving]
